FAERS Safety Report 6564509-7 (Version None)
Quarter: 2010Q1

REPORT INFORMATION
  Report Type: 
  Country: None (occurrence: None)
  Receive Date: 20100201
  Receipt Date: 20100119
  Transmission Date: 20100710
  Serious: Yes (Other)
  Sender: FDA-Public Use
  Company Number: US-ELI_LILLY_AND_COMPANY-US201001004085

PATIENT
  Age: 51 Year
  Sex: Female

DRUGS (1)
  1. FORTEO [Suspect]
     Dosage: UNK, UNK
     Dates: start: 20100101, end: 20100101

REACTIONS (2)
  - OBSTRUCTIVE AIRWAYS DISORDER [None]
  - SWELLING FACE [None]
